FAERS Safety Report 13373821 (Version 5)
Quarter: 2017Q2

REPORT INFORMATION
  Report Type: Spontaneous
  Country: US (occurrence: US)
  Receive Date: 20170327
  Receipt Date: 20170428
  Transmission Date: 20170830
  Serious: Yes (Death, Hospitalization, Other)
  Sender: FDA-Public Use
  Company Number: US-PFIZER INC-2017128626

PATIENT
  Age: 70 Year
  Sex: Female
  Weight: 49.9 kg

DRUGS (2)
  1. IBRANCE [Suspect]
     Active Substance: PALBOCICLIB
     Dosage: 125 MG, CYCLIC, (D1-21 Q28 DAYS)
     Route: 048
     Dates: start: 20170322
  2. IBRANCE [Suspect]
     Active Substance: PALBOCICLIB
     Indication: BREAST CANCER METASTATIC
     Dosage: 125 MG, CYCLIC, (D1-21 Q28 DAYS)
     Route: 048
     Dates: start: 20170321

REACTIONS (5)
  - Heart rate increased [Recovered/Resolved]
  - Pyrexia [Unknown]
  - Constipation [Unknown]
  - Death [Fatal]
  - Influenza [Unknown]
